FAERS Safety Report 4709146-1 (Version None)
Quarter: 2005Q3

REPORT INFORMATION
  Report Type: 
  Country: None (occurrence: None)
  Receive Date: 20050706
  Receipt Date: 20050622
  Transmission Date: 20060218
  Serious: Yes (Other)
  Sender: FDA-Public Use
  Company Number: 430051K05USA

PATIENT
  Age: 63 Year
  Sex: Female
  Weight: 77.1115 kg

DRUGS (1)
  1. NOVANTRONE [Suspect]
     Indication: MULTIPLE SCLEROSIS
     Dosage: 22 MG, 1 IN 3 MONTHS,
     Dates: start: 20040130, end: 20050422

REACTIONS (6)
  - CARDIAC DISORDER [None]
  - ECHOCARDIOGRAM ABNORMAL [None]
  - EJECTION FRACTION DECREASED [None]
  - HYPERTENSION [None]
  - MULTIPLE GATED ACQUISITION SCAN ABNORMAL [None]
  - VENTRICULAR HYPERTROPHY [None]
